FAERS Safety Report 11123821 (Version 1)
Quarter: 2015Q2

REPORT INFORMATION
  Report Type: Spontaneous
  Country: IR (occurrence: IR)
  Receive Date: 20150520
  Receipt Date: 20150520
  Transmission Date: 20150821
  Serious: Yes (Death, Hospitalization, Other)
  Sender: FDA-Public Use
  Company Number: IR-SUN PHARMACEUTICAL INDUSTRIES LTD-2015RR-97069

PATIENT
  Age: 32 Year
  Sex: Male

DRUGS (14)
  1. VORICONAZOLE. [Suspect]
     Active Substance: VORICONAZOLE
     Indication: BRONCHOPULMONARY ASPERGILLOSIS
  2. CIPROFLOXACIN 100MG [Suspect]
     Active Substance: CIPROFLOXACIN
     Indication: FUNGAL INFECTION
     Dosage: 400 MG, BID
     Route: 065
  3. PREDNISOLONE. [Suspect]
     Active Substance: PREDNISOLONE
     Indication: PYODERMA GANGRENOSUM
     Dosage: UNK
     Route: 048
  4. LINEZOLID. [Suspect]
     Active Substance: LINEZOLID
     Indication: BACTERIAL INFECTION
  5. METHYLPREDNISOLONE. [Suspect]
     Active Substance: METHYLPREDNISOLONE
     Indication: PYODERMA GANGRENOSUM
     Route: 065
  6. CYCLOSPORINE. [Suspect]
     Active Substance: CYCLOSPORINE
     Indication: PYODERMA GANGRENOSUM
     Dosage: UNK
     Route: 065
  7. LINEZOLID. [Suspect]
     Active Substance: LINEZOLID
     Indication: BRONCHOPULMONARY ASPERGILLOSIS
  8. MEROPENEM. [Suspect]
     Active Substance: MEROPENEM
     Indication: BRONCHOPULMONARY ASPERGILLOSIS
     Dosage: 1 G, TID
     Route: 042
  9. CIPROFLOXACIN 100MG [Suspect]
     Active Substance: CIPROFLOXACIN
     Indication: BACTERIAL INFECTION
  10. VORICONAZOLE. [Suspect]
     Active Substance: VORICONAZOLE
     Indication: BACTERIAL INFECTION
  11. LINEZOLID. [Suspect]
     Active Substance: LINEZOLID
     Indication: FUNGAL SKIN INFECTION
     Dosage: 600 MG, BID
     Route: 065
  12. MEROPENEM. [Suspect]
     Active Substance: MEROPENEM
     Indication: FUNGAL SKIN INFECTION
  13. MEROPENEM. [Suspect]
     Active Substance: MEROPENEM
     Indication: BACTERIAL INFECTION
  14. VORICONAZOLE. [Suspect]
     Active Substance: VORICONAZOLE
     Indication: FUNGAL SKIN INFECTION
     Dosage: 6 MG/KG, BID
     Route: 042

REACTIONS (4)
  - Bronchopulmonary aspergillosis [Fatal]
  - Fungal skin infection [Fatal]
  - Sepsis [None]
  - Drug ineffective [Fatal]
